FAERS Safety Report 5047188-X (Version None)
Quarter: 2006Q2

REPORT INFORMATION
  Report Type: 
  Country: None (occurrence: None)
  Receive Date: 20060630
  Receipt Date: 20060622
  Transmission Date: 20061013
  Serious: Yes (Hospitalization, Other)
  Sender: FDA-Public Use
  Company Number: WAES 0606GBR00068

PATIENT
  Age: 77 Year
  Sex: Female

DRUGS (9)
  1. COZAAR [Suspect]
     Indication: CARDIAC FAILURE CONGESTIVE
     Dosage: PO
     Route: 048
     Dates: start: 20031201
  2. BISOPROLOL FUMARATE [Concomitant]
  3. CLOPIDOGREL BISULFATE [Concomitant]
  4. DIGOXIN [Concomitant]
  5. FUROSEMIDE [Concomitant]
  6. ISOSORBIDE MONONITRATE [Concomitant]
  7. LEVOTHYROXINE SODIUM [Concomitant]
  8. PRAVASTATIN SODIUM [Concomitant]
  9. WARFARIN SODIUM [Concomitant]

REACTIONS (6)
  - CORONARY ARTERY DISEASE [None]
  - HEADACHE [None]
  - HEART RATE INCREASED [None]
  - LETHARGY [None]
  - MALAISE [None]
  - NON-CARDIAC CHEST PAIN [None]
